FAERS Safety Report 13815636 (Version 3)
Quarter: 2017Q3

REPORT INFORMATION
  Report Type: Report from Study
  Country: US (occurrence: US)
  Receive Date: 20170731
  Receipt Date: 20170901
  Transmission Date: 20171127
  Serious: Yes (Other)
  Sender: FDA-Public Use
  Company Number: US-VERTEX PHARMACEUTICALS-2017-003842

PATIENT
  Age: 10 Year
  Sex: Female
  Weight: 35 kg

DRUGS (20)
  1. ZYRTEC [Concomitant]
     Active Substance: CETIRIZINE HYDROCHLORIDE
     Indication: CHRONIC SINUSITIS
     Dosage: 10 MG, QD
     Route: 048
     Dates: start: 20140523
  2. ADDERALL [Concomitant]
     Active Substance: AMPHETAMINE ASPARTATE\AMPHETAMINE SULFATE\DEXTROAMPHETAMINE SACCHARATE\DEXTROAMPHETAMINE SULFATE
     Indication: ATTENTION DEFICIT/HYPERACTIVITY DISORDER
     Dosage: 10 ML, BID
     Route: 048
     Dates: start: 20160314
  3. MELATONIN [Concomitant]
     Active Substance: MELATONIN
     Indication: INITIAL INSOMNIA
     Dosage: 1 DF, PRN
     Route: 048
     Dates: start: 201509
  4. CETIRIZINE [Concomitant]
     Active Substance: CETIRIZINE HYDROCHLORIDE
     Dosage: 10 MG, QD
     Route: 048
  5. VX-809/VX-770 COMBINATION [Suspect]
     Active Substance: IVACAFTOR\LUMACAFTOR
     Indication: CYSTIC FIBROSIS
     Dosage: LUMACAFTOR 200 MG/IVACAFTOR 250 MG BID
     Route: 048
     Dates: start: 20160718, end: 20170717
  6. AQUADEKS [Concomitant]
     Active Substance: MINERALS\VITAMINS
     Indication: PANCREATIC FAILURE
     Dosage: 1 DF, QD
     Route: 048
     Dates: start: 20080110
  7. LACTASE [Concomitant]
     Active Substance: LACTASE
     Indication: LACTOSE INTOLERANCE
     Dosage: 2 DF, TID
     Route: 048
     Dates: start: 20120418
  8. AUGMENTIN [Concomitant]
     Active Substance: AMOXICILLIN\CLAVULANATE POTASSIUM
     Dosage: 10 ML, BID
     Route: 048
  9. HYPERTONIC SALINE SOLUTION [Concomitant]
     Active Substance: SODIUM CHLORIDE
     Indication: CYSTIC FIBROSIS LUNG
     Dosage: 1 VIAL, QD
     Route: 055
     Dates: start: 20100909
  10. ACTIGALL [Concomitant]
     Active Substance: URSODIOL
     Indication: CYSTIC FIBROSIS HEPATIC DISEASE
     Dosage: 300 MG, BID
     Route: 048
     Dates: start: 20150728
  11. VITAMIN D3 [Concomitant]
     Active Substance: CHOLECALCIFEROL
     Indication: PANCREATIC FAILURE
     Dosage: 1 DF, QD
     Route: 048
     Dates: start: 20120305
  12. ALBUTEROL. [Concomitant]
     Active Substance: ALBUTEROL
     Dosage: 2 PUFFS, PRN
     Route: 055
     Dates: start: 20090730
  13. OMEPRAZOLE. [Concomitant]
     Active Substance: OMEPRAZOLE
     Indication: PANCREATIC FAILURE
     Dosage: 20 MG, BID
     Route: 048
     Dates: start: 20120517
  14. ALBUTEROL. [Concomitant]
     Active Substance: ALBUTEROL
     Indication: CYSTIC FIBROSIS LUNG
     Dosage: 1 VIAL, PRN
     Route: 055
     Dates: start: 20090108
  15. MEPHYTON [Concomitant]
     Active Substance: PHYTONADIONE
     Indication: PANCREATIC FAILURE
     Dosage: 5 MG, 1 WEEK
     Route: 048
     Dates: start: 20120304
  16. PULMOZYME [Concomitant]
     Active Substance: DORNASE ALFA
     Indication: CYSTIC FIBROSIS LUNG
     Dosage: 1 VIAL, QD
     Route: 055
     Dates: start: 20080201
  17. CREON [Concomitant]
     Active Substance: PANCRELIPASE AMYLASE\PANCRELIPASE LIPASE\PANCRELIPASE PROTEASE
     Indication: PANCREATIC FAILURE
     Dosage: 3 WITH MEALS, 1-2 WITH SNACKS
     Dates: start: 20151222
  18. FLONASE [Concomitant]
     Active Substance: FLUTICASONE PROPIONATE
     Indication: CHRONIC SINUSITIS
     Dosage: 2 SPRAYS, QD
     Route: 045
     Dates: start: 20140318
  19. SODIUM CHLORIDE. [Concomitant]
     Active Substance: SODIUM CHLORIDE
     Dosage: 1 DF, QD
     Route: 055
  20. FLOVENT HFA [Concomitant]
     Active Substance: FLUTICASONE PROPIONATE
     Dosage: 2 PUFFS, BID
     Dates: start: 20121220

REACTIONS (1)
  - Cystic fibrosis hepatic disease [Not Recovered/Not Resolved]

NARRATIVE: CASE EVENT DATE: 20170711
